FAERS Safety Report 18529622 (Version 1)
Quarter: 2020Q4

REPORT INFORMATION
  Report Type: Spontaneous
  Country: US (occurrence: US)
  Receive Date: 20201120
  Receipt Date: 20201120
  Transmission Date: 20210114
  Serious: Yes (Hospitalization)
  Sender: FDA-Public Use
  Company Number: US-NOVOPROD-723340

PATIENT
  Age: 75 Year
  Sex: Female

DRUGS (2)
  1. NOVOLOG [Suspect]
     Active Substance: INSULIN ASPART
     Dosage: DOSE INCREASED
     Route: 058
  2. NOVOLOG [Suspect]
     Active Substance: INSULIN ASPART
     Indication: TYPE 2 DIABETES MELLITUS
     Dosage: 8 IU, TID
     Route: 058
     Dates: start: 2010

REACTIONS (5)
  - Blood glucose increased [Unknown]
  - Renal disorder [Unknown]
  - Cardiac disorder [Unknown]
  - Blood glucose decreased [Unknown]
  - Pancreatic failure [Unknown]
